FAERS Safety Report 7122835-7 (Version None)
Quarter: 2010Q4

REPORT INFORMATION
  Report Type: 
  Country: None (occurrence: None)
  Receive Date: 20101124
  Receipt Date: 20101112
  Transmission Date: 20110411
  Serious: Yes (Other)
  Sender: FDA-Public Use
  Company Number: PHEH2006US08869

PATIENT
  Sex: Female

DRUGS (2)
  1. AREDIA [Suspect]
  2. ZOMETA [Suspect]

REACTIONS (13)
  - ANXIETY [None]
  - ATROPHY [None]
  - BETA 2 MICROGLOBULIN INCREASED [None]
  - BONE DISORDER [None]
  - CENTRAL VENOUS CATHETERISATION [None]
  - DECREASED INTEREST [None]
  - DEEP VEIN THROMBOSIS [None]
  - GENERAL PHYSICAL HEALTH DETERIORATION [None]
  - GINGIVAL ULCERATION [None]
  - HAEMATOMA [None]
  - INTERVERTEBRAL DISC DEGENERATION [None]
  - OSTEONECROSIS OF JAW [None]
  - PAIN [None]
